FAERS Safety Report 8923465 (Version 1)
Quarter: 2012Q4

REPORT INFORMATION
  Report Type: Spontaneous
  Country: DK (occurrence: None)
  Receive Date: 20121114
  Receipt Date: 20121114
  Transmission Date: 20130627
  Serious: Yes (Hospitalization)
  Sender: FDA-Public Use
  Company Number: 2012MA013248

PATIENT
  Age: 56 Year
  Sex: Male
  Weight: 90 kg

DRUGS (1)
  1. ACYCLOVIR [Suspect]
     Indication: HERPES SIMPLEX ENCEPHALITIS

REACTIONS (6)
  - Brain injury [None]
  - Medication error [None]
  - Underdose [None]
  - Nervous system disorder [None]
  - Disease recurrence [None]
  - Herpes simplex encephalitis [None]
